FAERS Safety Report 9385013 (Version 2)
Quarter: 2013Q3

REPORT INFORMATION
  Report Type: Spontaneous
  Country: US (occurrence: US)
  Receive Date: 20130705
  Receipt Date: 20130815
  Transmission Date: 20140515
  Serious: Yes (Other)
  Sender: FDA-Public Use
  Company Number: US-ASTELLAS-2013US006889

PATIENT
  Age: 78 Year
  Sex: Female
  Weight: 100 kg

DRUGS (1)
  1. MYRBETRIQ [Suspect]
     Indication: URINARY INCONTINENCE
     Dosage: 50 MG, UID/QD
     Route: 048
     Dates: start: 201304

REACTIONS (3)
  - Intentional drug misuse [Unknown]
  - Blood glucose increased [Recovering/Resolving]
  - Blood pressure decreased [Unknown]
